FAERS Safety Report 13368713 (Version 4)
Quarter: 2018Q2

REPORT INFORMATION
  Report Type: Spontaneous
  Country: US (occurrence: US)
  Receive Date: 20170324
  Receipt Date: 20180402
  Transmission Date: 20180711
  Serious: Yes (Hospitalization, Other)
  Sender: FDA-Public Use
  Company Number: US-PFIZER INC-2017128030

PATIENT
  Age: 60 Year
  Sex: Female

DRUGS (1)
  1. XELJANZ XR [Suspect]
     Active Substance: TOFACITINIB CITRATE
     Dosage: 11 MG, UNK

REACTIONS (4)
  - Swelling face [Recovered/Resolved]
  - Respiratory tract infection [Recovered/Resolved]
  - Abscess jaw [Unknown]
  - Daydreaming [Unknown]

NARRATIVE: CASE EVENT DATE: 20170316
